FAERS Safety Report 20676318 (Version 1)
Quarter: 2022Q2

REPORT INFORMATION
  Report Type: Spontaneous
  Country: TR (occurrence: TR)
  Receive Date: 20220405
  Receipt Date: 20220405
  Transmission Date: 20220721
  Serious: Yes (Death)
  Sender: FDA-Public Use
  Company Number: TR-Fresenius Kabi-FK202203927

PATIENT

DRUGS (3)
  1. HEPARIN SODIUM [Suspect]
     Active Substance: HEPARIN SODIUM
     Indication: Pulmonary embolism
     Dosage: UNKNOWN
  2. ALTEPLASE [Suspect]
     Active Substance: ALTEPLASE
     Indication: Thrombectomy
     Dosage: UNKNOWN
  3. ANTIPYRINE\TETRACAINE [Suspect]
     Active Substance: ANTIPYRINE\TETRACAINE
     Indication: Anaesthesia
     Dosage: UNKNOWN

REACTIONS (1)
  - Foetal exposure during pregnancy [Fatal]
